FAERS Safety Report 4735470-2 (Version None)
Quarter: 2005Q3

REPORT INFORMATION
  Report Type: 
  Country: None (occurrence: None)
  Receive Date: 20050805
  Receipt Date: 20050727
  Transmission Date: 20060218
  Serious: Yes (Hospitalization)
  Sender: FDA-Public Use
  Company Number: 2005CG01312

PATIENT
  Age: 76 Year
  Sex: Male
  Weight: 80 kg

DRUGS (3)
  1. OMEPRAZOLE [Suspect]
     Route: 048
     Dates: end: 20041231
  2. OMEPRAZOLE [Suspect]
     Route: 048
     Dates: start: 20050101, end: 20050623
  3. OMEPRAZOLE [Suspect]
     Route: 048
     Dates: start: 20050101

REACTIONS (3)
  - FLUSHING [None]
  - HYPERHIDROSIS [None]
  - HYPERTENSION [None]
